FAERS Safety Report 7878385-3 (Version None)
Quarter: 2011Q4

REPORT INFORMATION
  Report Type: 
  Country: None (occurrence: None)
  Receive Date: 20111028
  Receipt Date: 20111026
  Transmission Date: 20120403
  Serious: Yes (Disabling)
  Sender: FDA-Public Use
  Company Number: SP04902

PATIENT
  Age: 52 Year
  Sex: Female
  Weight: 72.5755 kg

DRUGS (9)
  1. FLONASE [Concomitant]
  2. UNISOM [Concomitant]
  3. CITALORPAM [Concomitant]
  4. MOVIPREP [Suspect]
     Indication: BOWEL PREPARATION
     Dosage: (1 LIT),ORAL
     Route: 048
     Dates: start: 20110220, end: 20110220
  5. CYCLOBENZAPRINE [Concomitant]
  6. IBUPROFEN [Concomitant]
  7. ACETAMINOPHEN AND HYDROCODONE BITARTRATE [Concomitant]
  8. PRILOSEC [Concomitant]
  9. VALACYCLOVIR [Concomitant]

REACTIONS (1)
  - CONSTIPATION [None]
